FAERS Safety Report 4892319-5 (Version None)
Quarter: 2006Q1

REPORT INFORMATION
  Report Type: 
  Country: None (occurrence: None)
  Receive Date: 20060124
  Receipt Date: 20060124
  Transmission Date: 20060701
  Serious: Yes (Other)
  Sender: FDA-Public Use
  Company Number: None

PATIENT
  Sex: Female
  Weight: 52.1637 kg

DRUGS (1)
  1. ELIDEL -PIMECROLIMUS- CREAM 1% 1% NOVARTIS [Suspect]
     Indication: ECZEMA
     Dosage: APPLY TWICE DAILY TO AREA TWICE DAILY AS NEC EPIDURAL
     Route: 008
     Dates: start: 20030715, end: 20060119

REACTIONS (4)
  - CONSTIPATION [None]
  - DIARRHOEA [None]
  - FLATULENCE [None]
  - MUSCLE SPASMS [None]
